FAERS Safety Report 8811484 (Version 3)
Quarter: 2012Q4

REPORT INFORMATION
  Report Type: 
  Country: FR (occurrence: FR)
  Receive Date: 20120927
  Receipt Date: 20121126
  Transmission Date: 20130627
  Serious: Yes (Hospitalization, Disabling, Other)
  Sender: FDA-Public Use
  Company Number: FR-EISAI INC-E7273-00337-SPO-FR

PATIENT
  Sex: Male
  Weight: 70 kg

DRUGS (6)
  1. TARGRETIN [Suspect]
     Indication: MYCOSIS FUNGOIDES
     Route: 048
     Dates: start: 201012, end: 20120716
  2. EFFEXOR LP [Concomitant]
     Indication: DEPRESSION
     Route: 048
  3. XANAX [Concomitant]
     Indication: ANXIETY
     Route: 048
  4. TERCIAN [Concomitant]
     Indication: DEPRESSION
     Route: 048
  5. LEVOTHYROX [Concomitant]
     Indication: HYPOTHYROIDISM
     Route: 048
  6. PARIET [Concomitant]
     Indication: EPIGASTRALGIA
     Route: 048

REACTIONS (2)
  - Vitritis [Not Recovered/Not Resolved]
  - Hypothyroidism [None]
